FAERS Safety Report 9319856 (Version 1)
Quarter: 2012Q4

REPORT INFORMATION
  Report Type: Spontaneous
  Country: CH (occurrence: None)
  Receive Date: 20121109
  Receipt Date: 20121109
  Transmission Date: 20130628
  Serious: Yes (Death)
  Sender: FDA-Public Use
  Company Number: 2012S1000644

PATIENT
  Age: 48 Year
  Sex: Male

DRUGS (2)
  1. CUBICIN (DAPTOMYCIN) [Suspect]
     Indication: HEPATIC IMPAIRMENT
  2. VANCOMYCIN [Concomitant]

REACTIONS (1)
  - Post procedural haemorrhage [None]
